FAERS Safety Report 7780128-9 (Version None)
Quarter: 2011Q3

REPORT INFORMATION
  Report Type: 
  Country: None (occurrence: None)
  Receive Date: 20110922
  Receipt Date: 20110908
  Transmission Date: 20111222
  Serious: Yes (Other)
  Sender: FDA-Public Use
  Company Number: 1000023023

PATIENT
  Age: 42 Year
  Sex: Female
  Weight: 62 kg

DRUGS (1)
  1. ESCITALOPRAM [Suspect]
     Dosage: 10 MG (10 MG, 1 IN 1 D)
     Dates: start: 20040401, end: 20050601

REACTIONS (9)
  - CHOLELITHIASIS [None]
  - NEPHROLITHIASIS [None]
  - PHOTOSENSITIVITY REACTION [None]
  - ARTICULAR CALCIFICATION [None]
  - ALOPECIA [None]
  - POLYMYALGIA RHEUMATICA [None]
  - DECREASED APPETITE [None]
  - FATIGUE [None]
  - WEIGHT INCREASED [None]
